FAERS Safety Report 24059734 (Version 1)
Quarter: 2024Q3

REPORT INFORMATION
  Report Type: Spontaneous
  Country: IE (occurrence: None)
  Receive Date: 20240704
  Receipt Date: 20240704
  Transmission Date: 20241016
  Serious: Yes (Other)
  Sender: Public
  Company Number: None

PATIENT
  Age: 41 Year
  Sex: Male

DRUGS (1)
  1. HYDROXYCHLOROQUINE SULFATE [Suspect]
     Active Substance: HYDROXYCHLOROQUINE SULFATE
     Indication: COVID-19 prophylaxis
     Route: 065

REACTIONS (7)
  - Condition aggravated [None]
  - Sarcoidosis [None]
  - Lymphadenopathy [None]
  - Granuloma [None]
  - Fatigue [None]
  - Off label use [None]
  - Withdrawal syndrome [None]
